FAERS Safety Report 10595198 (Version 1)
Quarter: 2014Q4

REPORT INFORMATION
  Report Type: Spontaneous
  Country: US (occurrence: None)
  Receive Date: 20141119
  Receipt Date: 20141119
  Transmission Date: 20150529
  Serious: No
  Sender: FDA-Public Use
  Company Number: None

PATIENT
  Age: 61 Year
  Sex: Female
  Weight: 84.3 kg

DRUGS (1)
  1. TAXOTERE [Suspect]
     Active Substance: DOCETAXEL

REACTIONS (7)
  - Weight decreased [None]
  - Affective disorder [None]
  - Quality of life decreased [None]
  - Hypophagia [None]
  - Decreased appetite [None]
  - Mucosal inflammation [None]
  - Oral pain [None]

NARRATIVE: CASE EVENT DATE: 20141029
